FAERS Safety Report 8208160-1 (Version None)
Quarter: 2012Q1

REPORT INFORMATION
  Report Type: 
  Country: None (occurrence: None)
  Receive Date: 20120314
  Receipt Date: 20120307
  Transmission Date: 20120608
  Serious: Yes (Other)
  Sender: FDA-Public Use
  Company Number: PHHY2012JP020731

PATIENT
  Sex: Female
  Weight: 68 kg

DRUGS (9)
  1. AROMASIN [Concomitant]
     Route: 048
     Dates: end: 20100824
  2. AROMASIN [Concomitant]
     Route: 048
     Dates: start: 20081203
  3. NAVELBINE [Concomitant]
     Dates: start: 20110425
  4. FARESTON ^LAAKEFARMOS^ [Concomitant]
     Route: 048
     Dates: start: 20110112, end: 20110405
  5. ZOMETA [Suspect]
     Indication: METASTASES TO BONE
     Dosage: 4 MG, UNK
     Route: 041
     Dates: start: 20070404, end: 20110608
  6. ZOMETA [Suspect]
     Dosage: 4 MG, UNK
     Route: 041
     Dates: start: 20111102
  7. FEMARA [Concomitant]
     Route: 048
     Dates: start: 20090401, end: 20100525
  8. XELODA [Concomitant]
     Route: 048
     Dates: start: 20100824, end: 20101124
  9. ARIMIDEX [Concomitant]
     Route: 048
     Dates: start: 20070404, end: 20081203

REACTIONS (3)
  - EXPOSED BONE IN JAW [None]
  - OSTEONECROSIS OF JAW [None]
  - PERIODONTITIS [None]
